FAERS Safety Report 5694433-3 (Version None)
Quarter: 2008Q2

REPORT INFORMATION
  Report Type: 
  Country: None (occurrence: None)
  Receive Date: 20080404
  Receipt Date: 20080402
  Transmission Date: 20081010
  Serious: Yes (Hospitalization, Other)
  Sender: FDA-Public Use
  Company Number: PHNU2008DE01438

PATIENT
  Sex: Female

DRUGS (1)
  1. EXELON [Suspect]
     Dosage: 3 MG, ONCE/SINGLE
     Route: 048
     Dates: start: 20080329, end: 20080329

REACTIONS (4)
  - CONFUSIONAL STATE [None]
  - FALL [None]
  - TREMOR [None]
  - VOMITING [None]
